FAERS Safety Report 10735508 (Version 1)
Quarter: 2015Q1

REPORT INFORMATION
  Report Type: Report from Study
  Country: CN (occurrence: CN)
  Receive Date: 20150126
  Receipt Date: 20150126
  Transmission Date: 20150721
  Serious: Yes (Other)
  Sender: FDA-Public Use
  Company Number: CN-ROCHE-1524547

PATIENT

DRUGS (3)
  1. BORTEZOMIB [Suspect]
     Active Substance: BORTEZOMIB
     Indication: B-CELL LYMPHOMA
     Dosage: (3-S TO 5-S BOLUS) ON DAYS 1, 8, 15, AND 22 OF A MAXIMUM OF FIVE CYCLES
     Route: 040
  2. RITUXIMAB [Suspect]
     Active Substance: RITUXIMAB
     Indication: B-CELL LYMPHOMA
     Dosage: ON DAYS 1, 8, 15, AND 22 OF CYCLE 1, AND ON DAY ONE OF CYCLES 2-5,
     Route: 042
  3. BORTEZOMIB [Suspect]
     Active Substance: BORTEZOMIB
     Route: 040

REACTIONS (16)
  - Febrile neutropenia [Recovering/Resolving]
  - Constipation [Unknown]
  - Pyrexia [Unknown]
  - Diarrhoea [Recovering/Resolving]
  - Fatigue [Recovering/Resolving]
  - Neutropenia [Recovering/Resolving]
  - Herpes zoster [Recovered/Resolved]
  - Anaemia [Unknown]
  - Thrombocytopenia [Unknown]
  - Infection [Recovered/Resolved]
  - Hypotension [Unknown]
  - Rash [Unknown]
  - Peripheral sensory neuropathy [Recovering/Resolving]
  - Nausea [Recovering/Resolving]
  - Chills [Unknown]
  - Bone marrow failure [Unknown]
